FAERS Safety Report 4332427-0 (Version None)
Quarter: 2004Q1

REPORT INFORMATION
  Report Type: 
  Country: None (occurrence: None)
  Receive Date: 20040329
  Receipt Date: 20040126
  Transmission Date: 20041129
  Serious: No
  Sender: FDA-Public Use
  Company Number: 04P-163-0248342

PATIENT
  Age: 45 Year
  Sex: Female
  Weight: 67.586 kg

DRUGS (6)
  1. HUMIRA [Suspect]
     Indication: RHEUMATOID ARTHRITIS
     Dosage: 40 MG, 1 IN 2 WK, SUBCUTANEOUS
     Route: 058
     Dates: start: 20040113
  2. SERTRALINE HYDROCHLORIDE [Concomitant]
  3. PREDNISONE [Concomitant]
  4. VICODIN [Concomitant]
  5. ESTRATEST H.S. [Concomitant]
  6. ESTRACE [Concomitant]

REACTIONS (6)
  - INJECTION SITE ERYTHEMA [None]
  - INJECTION SITE PRURITUS [None]
  - INJECTION SITE URTICARIA [None]
  - LOCAL SWELLING [None]
  - RASH [None]
  - SWELLING FACE [None]
